FAERS Safety Report 20419860 (Version 2)
Quarter: 2022Q1

REPORT INFORMATION
  Report Type: Report from Study
  Country: US (occurrence: None)
  Receive Date: 20220203
  Receipt Date: 20220209
  Transmission Date: 20220423
  Serious: Yes (Death)
  Sender: FDA-Public Use
  Company Number: US-EMD Serono-9296880

PATIENT
  Age: 70 Year
  Sex: Male

DRUGS (2)
  1. REBIF [Suspect]
     Active Substance: INTERFERON BETA-1A
     Indication: Multiple sclerosis
     Route: 058
     Dates: start: 20030919
  2. REBIF [Suspect]
     Active Substance: INTERFERON BETA-1A
     Dosage: REBIF LAST SHIP DATE - 13 JAN 2022
     Route: 058
     Dates: start: 2004

REACTIONS (1)
  - Death [Fatal]

NARRATIVE: CASE EVENT DATE: 20220125
